FAERS Safety Report 6997249-0 (Version None)
Quarter: 2010Q3

REPORT INFORMATION
  Report Type: 
  Country: None (occurrence: None)
  Receive Date: 20100918
  Receipt Date: 20090922
  Transmission Date: 20110219
  Serious: No
  Sender: FDA-Public Use
  Company Number: US-WYE-H11157209

PATIENT
  Sex: Female
  Weight: 118.04 kg

DRUGS (9)
  1. PRISTIQ [Suspect]
     Indication: DEPRESSION
     Route: 048
     Dates: start: 20090908, end: 20090922
  2. ZOFRAN [Concomitant]
     Indication: IMPAIRED GASTRIC EMPTYING
     Dosage: UNKNOWN
  3. CYANOCOBALAMIN [Concomitant]
     Dosage: UNKNOWN
  4. XANAX [Concomitant]
     Dosage: UNKNOWN DOSE, AS NEEDED
  5. LISINOPRIL [Concomitant]
     Indication: HYPERTENSION
     Dosage: UNKNOWN
  6. ERGOCALCIFEROL [Concomitant]
     Dosage: UNKNOWN
  7. METFORMIN [Concomitant]
     Indication: DIABETES MELLITUS
  8. PREVACID [Concomitant]
     Indication: GASTRIC BYPASS
     Dosage: UNKNOWN
  9. PREVACID [Concomitant]
     Indication: ULCER

REACTIONS (7)
  - DRUG ERUPTION [None]
  - OEDEMA PERIPHERAL [None]
  - PAIN OF SKIN [None]
  - RASH MACULO-PAPULAR [None]
  - RASH PRURITIC [None]
  - RASH VESICULAR [None]
  - SUNBURN [None]
